FAERS Safety Report 20527717 (Version 1)
Quarter: 2022Q1

REPORT INFORMATION
  Report Type: Report from Study
  Country: US (occurrence: None)
  Receive Date: 20220228
  Receipt Date: 20220228
  Transmission Date: 20220423
  Serious: Yes (Death)
  Sender: FDA-Public Use
  Company Number: 2022A090184

PATIENT
  Sex: Female

DRUGS (30)
  1. FASENRA [Suspect]
     Active Substance: BENRALIZUMAB
     Indication: Asthma
     Dosage: 30MG/ML EVERY EIGHT WEEKS
     Route: 058
     Dates: start: 20180503
  2. MIRALAX [Concomitant]
     Active Substance: POLYETHYLENE GLYCOL 3350
  3. MONTELUKAST SODIUM [Concomitant]
     Active Substance: MONTELUKAST SODIUM
  4. NAPROXEN [Concomitant]
     Active Substance: NAPROXEN
  5. NYSTATIN [Concomitant]
     Active Substance: NYSTATIN
  6. ONDANSETRON [Concomitant]
     Active Substance: ONDANSETRON
     Dosage: 8MG
  7. PANTOPRAZOLE [Concomitant]
     Active Substance: PANTOPRAZOLE
     Dosage: 20MG
  8. PHENERGAN [Concomitant]
     Active Substance: PROMETHAZINE HYDROCHLORIDE
     Dosage: 25MG/ML
  9. SPIRIVA [Concomitant]
     Active Substance: TIOTROPIUM BROMIDE MONOHYDRATE
  10. STOOL SOFTENER (DOCUSATE) [Concomitant]
     Active Substance: DOCUSATE
  11. VENTOLIN HFA [Concomitant]
     Active Substance: ALBUTEROL SULFATE
  12. VITAMIN C [Concomitant]
     Active Substance: ASCORBIC ACID
     Dosage: 500MG
  13. PYRIDOXINE [Concomitant]
     Active Substance: PYRIDOXINE
     Dosage: 50MG
  14. METHOTREXATE [Concomitant]
     Active Substance: METHOTREXATE
     Dosage: 2.5MG
  15. MECLIZINE [Concomitant]
     Active Substance: MECLIZINE HYDROCHLORIDE
     Dosage: 12.5MG
  16. LORATADINE [Concomitant]
     Active Substance: LORATADINE
     Dosage: 1OMG
  17. HYDROCHLOROTHIAZIDE [Concomitant]
     Active Substance: HYDROCHLOROTHIAZIDE
     Dosage: 25MG
  18. FOLIC ACID [Concomitant]
     Active Substance: FOLIC ACID
     Dosage: 1MG
  19. FLUTICASONE [Concomitant]
     Active Substance: FLUTICASONE
     Dosage: 50MCG
  20. FERROUS SULFATE [Concomitant]
     Active Substance: FERROUS SULFATE
     Dosage: 325MG EC
  21. FENOFIBRATE [Concomitant]
     Active Substance: FENOFIBRATE
     Dosage: 48MG
  22. ERGOCALCIFER [Concomitant]
  23. EPIPEN [Concomitant]
     Active Substance: EPINEPHRINE
     Dosage: 0.3MG
  24. DICLOFENAC [Concomitant]
     Active Substance: DICLOFENAC
     Dosage: 1%
  25. CYCLOBENZAPRINE [Concomitant]
     Active Substance: CYCLOBENZAPRINE
     Dosage: 10MG
  26. CIMETIDINE [Concomitant]
     Active Substance: CIMETIDINE
     Dosage: 300MG
  27. CALCIUM/D [Concomitant]
  28. BENADRYL [Concomitant]
     Active Substance: DIPHENHYDRAMINE HYDROCHLORIDE
     Dosage: 25MG
  29. ASPIRIN [Concomitant]
     Active Substance: ASPIRIN
     Dosage: 81MG EC
  30. ALBUTEROL [Concomitant]
     Active Substance: ALBUTEROL
     Dosage: 1.25MG/3

REACTIONS (1)
  - Death [Fatal]
